FAERS Safety Report 13978633 (Version 1)
Quarter: 2017Q3

REPORT INFORMATION
  Report Type: Spontaneous
  Country: US (occurrence: US)
  Receive Date: 20170915
  Receipt Date: 20170915
  Transmission Date: 20171128
  Serious: No
  Sender: FDA-Public Use
  Company Number: US-LPDUSPRD-20160900

PATIENT
  Age: 36 Year
  Sex: Female

DRUGS (5)
  1. LORAZEPAM. [Concomitant]
     Active Substance: LORAZEPAM
     Dosage: 0.5 MG
     Route: 048
     Dates: start: 201606
  2. RANNITIDINE [Concomitant]
     Dosage: 150 MG TWICE DAILY
     Route: 048
     Dates: start: 2009
  3. FEXOFENADINE [Concomitant]
     Active Substance: FEXOFENADINE\FEXOFENADINE HYDROCHLORIDE
     Dosage: 180 MG DAILY
     Route: 048
     Dates: start: 2010
  4. INJECTAFER [Suspect]
     Active Substance: FERRIC CARBOXYMALTOSE
     Dosage: 750 MG IN 100 ML NS IN 20 MIN
     Route: 042
     Dates: start: 20160930, end: 20160930
  5. RITALIN [Concomitant]
     Active Substance: METHYLPHENIDATE HYDROCHLORIDE
     Dosage: 20 MG TWICE DAILY
     Route: 048
     Dates: start: 201502

REACTIONS (4)
  - Head discomfort [Recovered/Resolved]
  - Injection site pruritus [Unknown]
  - Throat irritation [Unknown]
  - Chest discomfort [Recovered/Resolved]

NARRATIVE: CASE EVENT DATE: 20160930
